FAERS Safety Report 9806211 (Version 1)
Quarter: 2014Q1

REPORT INFORMATION
  Report Type: Spontaneous
  Country: GB (occurrence: None)
  Receive Date: 20140107
  Receipt Date: 20140107
  Transmission Date: 20141002
  Serious: Yes (Hospitalization)
  Sender: FDA-Public Use
  Company Number: 2013P1022298

PATIENT
  Sex: 0

DRUGS (4)
  1. PROMETHAZINE [Suspect]
  2. FENTANYL [Suspect]
  3. MIDAZOLAM HCL [Suspect]
  4. CHLORAL HYDRATE [Suspect]

REACTIONS (1)
  - Drug withdrawal syndrome [None]
